FAERS Safety Report 11234073 (Version 2)
Quarter: 2015Q3

REPORT INFORMATION
  Report Type: Spontaneous
  Country: JP (occurrence: JP)
  Receive Date: 20150702
  Receipt Date: 20150713
  Transmission Date: 20151125
  Serious: Yes (Hospitalization)
  Sender: FDA-Public Use
  Company Number: PHJP2015JP010684

PATIENT
  Age: 57 Year
  Sex: Female

DRUGS (1)
  1. ZOLEDRONATE [Suspect]
     Active Substance: ZOLEDRONIC ACID
     Indication: METASTASES TO BONE
     Route: 065

REACTIONS (5)
  - Fall [Unknown]
  - Femur fracture [Recovering/Resolving]
  - Atypical fracture [Recovering/Resolving]
  - Bone pain [Recovering/Resolving]
  - Fracture displacement [Recovering/Resolving]
